FAERS Safety Report 6653211-9 (Version None)
Quarter: 2010Q1

REPORT INFORMATION
  Report Type: 
  Country: None (occurrence: None)
  Receive Date: 20100326
  Receipt Date: 20100316
  Transmission Date: 20100710
  Serious: Yes (Other)
  Sender: FDA-Public Use
  Company Number: AT-ELI_LILLY_AND_COMPANY-AT201003000149

PATIENT
  Age: 31 Year
  Sex: Female
  Weight: 93.5 kg

DRUGS (2)
  1. ZYPREXA [Suspect]
     Indication: ACUTE PSYCHOSIS
     Dosage: 15 MG, DAILY (1/D)
     Dates: start: 20100202, end: 20100202
  2. TEMESTA [Concomitant]
     Indication: AGITATION
     Dosage: 2.5 MG, DAILY (1/D)
     Dates: start: 20100202

REACTIONS (1)
  - ELECTROCARDIOGRAM QT PROLONGED [None]
